FAERS Safety Report 12627930 (Version 1)
Quarter: 2016Q3

REPORT INFORMATION
  Report Type: Spontaneous
  Country: US (occurrence: US)
  Receive Date: 20160807
  Receipt Date: 20160807
  Transmission Date: 20161109
  Serious: No
  Sender: FDA-Public Use
  Company Number: US-009507513-1608USA001651

PATIENT
  Age: 75 Year
  Sex: Female
  Weight: 70.3 kg

DRUGS (1)
  1. LIDOCAINE. [Suspect]
     Active Substance: LIDOCAINE
     Indication: SUNBURN
     Dosage: 1 DF, PRN
     Route: 061

REACTIONS (1)
  - Drug ineffective [Unknown]
